FAERS Safety Report 9281190 (Version 1)
Quarter: 2013Q2

REPORT INFORMATION
  Report Type: Report from Study
  Country: US (occurrence: US)
  Receive Date: 20130509
  Receipt Date: 20130509
  Transmission Date: 20140414
  Serious: No
  Sender: FDA-Public Use
  Company Number: PHHY2011US49452

PATIENT
  Age: 66 Year
  Sex: Female
  Weight: 80.73 kg

DRUGS (8)
  1. TASIGNA [Suspect]
     Indication: CHRONIC MYELOID LEUKAEMIA
     Dosage: 400 MG, BID
     Route: 048
     Dates: start: 2008
  2. KEPPRA [Concomitant]
  3. TEGRETOL XR [Concomitant]
  4. LISINOPRIL [Concomitant]
  5. METOPROLOL [Concomitant]
  6. ISOSORBIDE MONONITRATE [Concomitant]
  7. VITAMIN D [Concomitant]
  8. IRON [Concomitant]

REACTIONS (4)
  - Gait disturbance [Not Recovered/Not Resolved]
  - Dry skin [Recovering/Resolving]
  - Arthralgia [Not Recovered/Not Resolved]
  - Nausea [Unknown]
